FAERS Safety Report 19543359 (Version 2)
Quarter: 2021Q3

REPORT INFORMATION
  Report Type: Report from Study
  Country: NZ (occurrence: NZ)
  Receive Date: 20210714
  Receipt Date: 20210725
  Transmission Date: 20211014
  Serious: Yes (Hospitalization)
  Sender: FDA-Public Use
  Company Number: NZ-ROCHE-2864057

PATIENT
  Age: 65 Year
  Sex: Male
  Weight: 65.2 kg

DRUGS (6)
  1. ATEZOLIZUMAB. [Suspect]
     Active Substance: ATEZOLIZUMAB
     Indication: HEPATIC CANCER
     Dosage: ON 29/MAY/2021, HE RECEIVED THE MOST RECENT DOSE OF ATEZOLIZUMAB (1200 MG) PRIOR TO SERIOUS ADVERSE
     Route: 041
     Dates: start: 20210518
  2. TIRAGOLUMAB. [Suspect]
     Active Substance: TIRAGOLUMAB
     Indication: HEPATIC CANCER
     Dosage: ON 29/JUN/2021, HE RECEIVED THE MOST RECENT DOSE OF TIRAGOLUMAB (600 MG) PRIOR TO SERIOUS ADVERSE EV
     Route: 042
     Dates: start: 20210518
  3. PARACETAMOL [Concomitant]
     Active Substance: ACETAMINOPHEN
     Indication: PAIN
     Route: 048
     Dates: start: 20210501
  4. OMEPRAZOLE. [Concomitant]
     Active Substance: OMEPRAZOLE
     Indication: PROPHYLAXIS
     Route: 048
     Dates: start: 202102
  5. BEVACIZUMAB. [Suspect]
     Active Substance: BEVACIZUMAB
     Indication: HEPATIC CANCER
     Dosage: ON 29/JUN/2021, HE RECEIVED THE MOST RECENT DOSE OF BEVACIZUMAB (978 MG) PRIOR TO SERIOUS ADVERSE EV
     Route: 042
     Dates: start: 20210518
  6. ENTECAVIR. [Concomitant]
     Active Substance: ENTECAVIR
     Indication: HEPATITIS B
     Route: 048
     Dates: start: 202102

REACTIONS (1)
  - Fall [Unknown]

NARRATIVE: CASE EVENT DATE: 20210702
